FAERS Safety Report 8853830 (Version 3)
Quarter: 2013Q1

REPORT INFORMATION
  Report Type: Spontaneous
  Country: US (occurrence: US)
  Receive Date: 20121022
  Receipt Date: 20130121
  Transmission Date: 20140127
  Serious: No
  Sender: FDA-Public Use
  Company Number: US-PFIZER INC-2012258066

PATIENT
  Age: 47 Year
  Sex: Female

DRUGS (2)
  1. BENZYLPENICILLIN POTASSIUM [Suspect]
     Dosage: UNK
  2. ERYTHROMYCIN [Suspect]
     Dosage: UNK

REACTIONS (1)
  - Drug hypersensitivity [Unknown]
